FAERS Safety Report 14735102 (Version 2)
Quarter: 2018Q3

REPORT INFORMATION
  Report Type: Report from Study
  Country: None (occurrence: US)
  Receive Date: 20180409
  Receipt Date: 20180716
  Transmission Date: 20181010
  Serious: No
  Sender: FDA-Public Use
  Company Number: US-ABBVIE-17K-163-2130668-00

PATIENT
  Age: 66 Year
  Sex: Female

DRUGS (3)
  1. PREDNISONE. [Suspect]
     Active Substance: PREDNISONE
     Indication: PRODUCT USED FOR UNKNOWN INDICATION
     Route: 065
  2. METHOTREXATE. [Suspect]
     Active Substance: METHOTREXATE
     Indication: PRODUCT USED FOR UNKNOWN INDICATION
     Route: 065
  3. HUMIRA [Suspect]
     Active Substance: ADALIMUMAB
     Indication: RHEUMATOID ARTHRITIS
     Route: 058
     Dates: start: 20171005

REACTIONS (22)
  - Joint swelling [Unknown]
  - Swelling [Unknown]
  - Arthralgia [Recovered/Resolved]
  - Arthralgia [Unknown]
  - Musculoskeletal stiffness [Recovered/Resolved]
  - Vision blurred [Unknown]
  - Chronic obstructive pulmonary disease [Unknown]
  - Joint swelling [Recovered/Resolved]
  - Sinus disorder [Unknown]
  - Eyelid oedema [Not Recovered/Not Resolved]
  - Musculoskeletal stiffness [Unknown]
  - Depression [Not Recovered/Not Resolved]
  - Ear pain [Unknown]
  - Nasopharyngitis [Recovered/Resolved]
  - Musculoskeletal pain [Unknown]
  - Drug ineffective [Unknown]
  - Headache [Recovered/Resolved]
  - Erythema of eyelid [Not Recovered/Not Resolved]
  - Joint stiffness [Recovered/Resolved]
  - Pneumonia [Recovered/Resolved]
  - Joint stiffness [Unknown]
  - Peripheral swelling [Recovering/Resolving]

NARRATIVE: CASE EVENT DATE: 2017
